FAERS Safety Report 18813458 (Version 2)
Quarter: 2021Q1

REPORT INFORMATION
  Report Type: Spontaneous
  Country: FR (occurrence: FR)
  Receive Date: 20210201
  Receipt Date: 20210205
  Transmission Date: 20210419
  Serious: Yes (Other)
  Sender: FDA-Public Use
  Company Number: FR-BIOVITRUM-2021FR0711

PATIENT
  Age: 15 Year
  Sex: Male
  Weight: 53 kg

DRUGS (9)
  1. BISOCE [Concomitant]
     Active Substance: BISOPROLOL
     Dosage: 2,5 MG, COMPRIM? PELLICUL? S?CABLE
     Route: 048
  2. KINERET [Suspect]
     Active Substance: ANAKINRA
     Indication: AUTOINFLAMMATORY DISEASE
     Route: 058
     Dates: start: 20201026, end: 20201105
  3. INEXIUM [Concomitant]
     Active Substance: ESOMEPRAZOLE
     Route: 048
  4. KINERET [Suspect]
     Active Substance: ANAKINRA
     Route: 058
     Dates: start: 20201106, end: 20201108
  5. CORTANCYL [Concomitant]
     Active Substance: PREDNISONE
     Route: 048
  6. FUNGIZONE [Concomitant]
     Active Substance: AMPHOTERICIN B
     Route: 048
  7. KINERET [Suspect]
     Active Substance: ANAKINRA
     Route: 058
     Dates: start: 20201109, end: 20201125
  8. LOVENOX [Concomitant]
     Active Substance: ENOXAPARIN SODIUM
     Route: 058
  9. RAMIPRIL. [Concomitant]
     Active Substance: RAMIPRIL
     Route: 048

REACTIONS (3)
  - Hepatocellular injury [Recovered/Resolved]
  - Injection site reaction [Recovering/Resolving]
  - Off label use [Recovered/Resolved]

NARRATIVE: CASE EVENT DATE: 20201026
